FAERS Safety Report 10097270 (Version 1)
Quarter: 2014Q2

REPORT INFORMATION
  Report Type: Spontaneous
  Country: CN (occurrence: CN)
  Receive Date: 20140422
  Receipt Date: 20140422
  Transmission Date: 20141212
  Serious: Yes (Other)
  Sender: FDA-Public Use
  Company Number: CN-ABBVIE-14K-035-1228578-00

PATIENT
  Age: 56 Year
  Sex: Female

DRUGS (3)
  1. SODIUM VALPROATE/VALPROIC ACID [Suspect]
     Indication: AFFECT LABILITY
     Dosage: EXTENDED RELEASE
     Route: 048
     Dates: start: 20121216, end: 20130726
  2. OLANZAPINE [Suspect]
     Indication: PRODUCT USED FOR UNKNOWN INDICATION
     Dates: start: 20121216
  3. AMISULPRIDE [Suspect]
     Indication: PRODUCT USED FOR UNKNOWN INDICATION
     Dates: start: 20121216

REACTIONS (1)
  - Leukopenia [Unknown]
